FAERS Safety Report 8798933 (Version 2)
Quarter: 2012Q4

REPORT INFORMATION
  Report Type: 
  Country: AT (occurrence: AT)
  Receive Date: 20120920
  Receipt Date: 20120927
  Transmission Date: 20130627
  Serious: Yes (Other)
  Sender: FDA-Public Use
  Company Number: AT-AMGEN-AUTSP2012058505

PATIENT
  Sex: Female

DRUGS (2)
  1. XGEVA [Suspect]
     Indication: METASTASES TO BONE
     Dosage: UNK
  2. CALCIUM [Concomitant]
     Dosage: UNK

REACTIONS (3)
  - Ascites [Unknown]
  - Protein total decreased [Unknown]
  - Blood calcium decreased [Unknown]
